FAERS Safety Report 5005180-5 (Version None)
Quarter: 2006Q2

REPORT INFORMATION
  Report Type: 
  Country: None (occurrence: None)
  Receive Date: 20060518
  Receipt Date: 20060213
  Transmission Date: 20061013
  Serious: Yes (Other)
  Sender: FDA-Public Use
  Company Number: PHNU2006DE00902

PATIENT
  Sex: Female

DRUGS (3)
  1. FORADIL [Suspect]
     Indication: ASTHMA
     Dosage: UNKNOWN
     Dates: start: 20060123, end: 20060223
  2. CLAFORAN [Concomitant]
     Indication: ASTHMA
     Dosage: UNKNOWN
     Route: 065
     Dates: start: 20060117, end: 20060121
  3. AMOXYPEN ^GRUENENTHAL^ [Concomitant]
     Indication: ASTHMA
     Dosage: 2000 MG/DAY
     Route: 048
     Dates: start: 20060109, end: 20060116

REACTIONS (5)
  - CAESAREAN SECTION [None]
  - DRUG EXPOSURE DURING PREGNANCY [None]
  - DYSPNOEA [None]
  - NORMAL NEWBORN [None]
  - PNEUMONIA [None]
